FAERS Safety Report 5880642-7 (Version None)
Quarter: 2008Q3

REPORT INFORMATION
  Report Type: 
  Country: None (occurrence: None)
  Receive Date: 20080912
  Receipt Date: 20080602
  Transmission Date: 20090109
  Serious: No
  Sender: FDA-Public Use
  Company Number: US-ABBOTT-08P-163-0455020-00

PATIENT
  Sex: Female
  Weight: 86.26 kg

DRUGS (9)
  1. HUMIRA [Suspect]
     Indication: PSORIASIS
     Route: 050
     Dates: start: 20080101
  2. HUMIRA [Suspect]
     Indication: PSORIATIC ARTHROPATHY
  3. METHOTREXATE [Concomitant]
     Indication: PSORIASIS
     Route: 048
     Dates: start: 20080523
  4. METHOTREXATE [Concomitant]
     Indication: PSORIATIC ARTHROPATHY
  5. FOLIC ACID [Concomitant]
     Indication: PSORIASIS
     Route: 048
     Dates: start: 20080523
  6. FOLIC ACID [Concomitant]
     Indication: PSORIATIC ARTHROPATHY
  7. NAPROXEN [Concomitant]
     Indication: PSORIATIC ARTHROPATHY
     Route: 048
  8. OMEPRAZOLE [Concomitant]
     Indication: GASTRIC DISORDER
     Route: 048
     Dates: start: 20080301
  9. BIRTH CONTROL PILLS [Concomitant]
     Indication: CONTRACEPTION
     Route: 048
     Dates: start: 20070601

REACTIONS (3)
  - ACCIDENTAL EXPOSURE [None]
  - DRUG EFFECT DECREASED [None]
  - INJECTION SITE PAIN [None]
